FAERS Safety Report 16675258 (Version 2)
Quarter: 2019Q3

REPORT INFORMATION
  Report Type: Other
  Country: TR (occurrence: TR)
  Receive Date: 20190806
  Receipt Date: 20190807
  Transmission Date: 20191004
  Serious: Yes (Death)
  Sender: FDA-Public Use
  Company Number: TR-B. BRAUN MEDICAL INC.-2072814

PATIENT
  Age: 61 Year
  Sex: Male

DRUGS (1)
  1. HEPARIN SODIUM IN DEXTROSE [Suspect]
     Active Substance: HEPARIN SODIUM
     Indication: PERIPHERAL ARTERIAL OCCLUSIVE DISEASE

REACTIONS (1)
  - Splenic rupture [Fatal]
